FAERS Safety Report 5734457-0 (Version None)
Quarter: 2008Q2

REPORT INFORMATION
  Report Type: 
  Country: None (occurrence: None)
  Receive Date: 20080512
  Receipt Date: 20080505
  Transmission Date: 20081010
  Serious: Yes (Hospitalization)
  Sender: FDA-Public Use
  Company Number: US-JNJFOC-20080500936

PATIENT
  Sex: Female

DRUGS (11)
  1. REMICADE [Suspect]
     Indication: CROHN'S DISEASE
     Route: 042
  2. GLUCOPHAGE [Concomitant]
  3. ZOFRAN [Concomitant]
  4. PROMETHAZINE [Concomitant]
  5. CYMBALTA [Concomitant]
  6. BENTYL [Concomitant]
  7. NORPRAMINE [Concomitant]
  8. PREDNISONE TAB [Concomitant]
  9. YASMIN [Concomitant]
  10. ZEGERID [Concomitant]
  11. PROMETHAZINE [Concomitant]

REACTIONS (3)
  - DEHYDRATION [None]
  - ENTERITIS [None]
  - GASTROINTESTINAL PAIN [None]
